FAERS Safety Report 12846344 (Version 3)
Quarter: 2017Q1

REPORT INFORMATION
  Report Type: Spontaneous
  Country: DK (occurrence: DK)
  Receive Date: 20161014
  Receipt Date: 20170322
  Transmission Date: 20170428
  Serious: Yes (Life-Threatening, Hospitalization, Other)
  Sender: FDA-Public Use
  Company Number: DK-009507513-1609DNK012583

PATIENT
  Age: 47 Year
  Sex: Female

DRUGS (5)
  1. ITRACONAZOLE. [Interacting]
     Active Substance: ITRACONAZOLE
     Indication: FUNGAL INFECTION
  2. PREGABALIN. [Concomitant]
     Active Substance: PREGABALIN
     Indication: NEURALGIA
     Dosage: 150 MG, TWO TIMES A DAY
     Route: 048
  3. SIMVASTATIN. [Suspect]
     Active Substance: SIMVASTATIN
     Indication: HYPERCHOLESTEROLAEMIA
     Dosage: 80 MG, QD; FOR SEVERAL YEARS
     Route: 048
     Dates: end: 201501
  4. ITRACONAZOLE. [Interacting]
     Active Substance: ITRACONAZOLE
     Indication: RASH
     Dosage: 100 MG, QD
     Route: 048
  5. METFORMIN [Concomitant]
     Active Substance: METFORMIN HYDROCHLORIDE
     Indication: TYPE 2 DIABETES MELLITUS
     Dosage: 500 MG, TWO TIMES A DAY, FOR SEVERAL YEARS
     Route: 048

REACTIONS (9)
  - Rhabdomyolysis [Recovered/Resolved]
  - Muscular weakness [Recovered/Resolved]
  - Labelled drug-drug interaction medication error [Recovered/Resolved]
  - Rhabdomyolysis [Recovering/Resolving]
  - Myoglobin blood increased [Recovered/Resolved]
  - Drug interaction [Recovering/Resolving]
  - Blood creatine phosphokinase increased [Recovered/Resolved]
  - Tenderness [Recovered/Resolved]
  - Myalgia [Recovered/Resolved]

NARRATIVE: CASE EVENT DATE: 201501
